FAERS Safety Report 13071977 (Version 1)
Quarter: 2016Q4

REPORT INFORMATION
  Report Type: Report from Study
  Country: CA (occurrence: CA)
  Receive Date: 20161229
  Receipt Date: 20161229
  Transmission Date: 20170207
  Serious: No
  Sender: FDA-Public Use
  Company Number: CA-JNJFOC-20161219291

PATIENT
  Age: 56 Year
  Sex: Male
  Weight: 66 kg

DRUGS (5)
  1. STELARA [Suspect]
     Active Substance: USTEKINUMAB
     Indication: CROHN^S DISEASE
     Route: 058
  2. PREDNISONE. [Concomitant]
     Active Substance: PREDNISONE
     Route: 065
  3. STELARA [Suspect]
     Active Substance: USTEKINUMAB
     Indication: CROHN^S DISEASE
     Route: 058
  4. STELARA [Suspect]
     Active Substance: USTEKINUMAB
     Indication: CROHN^S DISEASE
     Dosage: INDUCTION 3RD DOSE
     Route: 058
     Dates: start: 20161129
  5. FOSAMAX [Concomitant]
     Active Substance: ALENDRONATE SODIUM
     Route: 065

REACTIONS (7)
  - Pruritus [Unknown]
  - Faeces soft [Unknown]
  - Nausea [Unknown]
  - Influenza like illness [Unknown]
  - Product use issue [Unknown]
  - Abdominal pain [Recovering/Resolving]
  - Off label use [Unknown]

NARRATIVE: CASE EVENT DATE: 20161129
